FAERS Safety Report 8406854-6 (Version None)
Quarter: 2012Q2

REPORT INFORMATION
  Report Type: 
  Country: None (occurrence: None)
  Receive Date: 20120604
  Receipt Date: 20120601
  Transmission Date: 20120825
  Serious: Yes (Other)
  Sender: FDA-Public Use
  Company Number: US-PFIZER INC-2012132655

PATIENT
  Sex: Female

DRUGS (4)
  1. CELEBREX [Suspect]
     Dosage: 200 MG, 1X/DAY
     Dates: start: 20120301, end: 20120101
  2. CELEBREX [Suspect]
     Dosage: 200 MG, 1X/DAY
     Dates: start: 20120522, end: 20120523
  3. CELEBREX [Suspect]
     Dosage: 200 MG, 1X/DAY
     Dates: start: 20120531
  4. CELEBREX [Suspect]
     Dosage: 200 MG, 1X/DAY
     Dates: start: 20080101, end: 20110101

REACTIONS (8)
  - APHAGIA [None]
  - GASTRIC DISORDER [None]
  - WEIGHT DECREASED [None]
  - GASTRIC ULCER [None]
  - GASTRITIS [None]
  - ABDOMINAL DISCOMFORT [None]
  - ANXIETY [None]
  - MIDDLE INSOMNIA [None]
